FAERS Safety Report 11231093 (Version 1)
Quarter: 2015Q2

REPORT INFORMATION
  Report Type: Spontaneous
  Country: US (occurrence: None)
  Receive Date: 20150629
  Receipt Date: 20150629
  Transmission Date: 20150821
  Serious: No
  Sender: FDA-Public Use
  Company Number: None

PATIENT
  Age: 75 Year
  Sex: Female
  Weight: 74.84 kg

DRUGS (7)
  1. VITAMIN B12 [Concomitant]
     Active Substance: CYANOCOBALAMIN
  2. D3 [Concomitant]
     Active Substance: 25-HYDROXYCHOLECALCIFEROL, 5-TRANS-
  3. HOLY BASIL [Concomitant]
  4. TURMERIC [Concomitant]
     Active Substance: TURMERIC
  5. IMIQUIMOD CREAM 5% [Suspect]
     Active Substance: IMIQUIMOD
     Indication: PIGMENTATION LIP
     Dosage: NIGHTLY  AT BEDTIME APPLIED TO A SURFACE, USUALLY THE SKIN
     Route: 061
     Dates: start: 20150616, end: 20150626
  6. LOTREL [Concomitant]
     Active Substance: AMLODIPINE BESYLATE\BENAZEPRIL HYDROCHLORIDE
  7. FOOD BASED MULTI VITAMIN [Concomitant]

REACTIONS (7)
  - Lip pain [None]
  - Oral herpes [None]
  - Scab [None]
  - Feeling abnormal [None]
  - Self esteem decreased [None]
  - Blister [None]
  - Feeding disorder [None]

NARRATIVE: CASE EVENT DATE: 20150616
